FAERS Safety Report 5478503-0 (Version None)
Quarter: 2007Q4

REPORT INFORMATION
  Report Type: 
  Country: None (occurrence: None)
  Receive Date: 20071005
  Receipt Date: 20070927
  Transmission Date: 20080405
  Serious: Yes (Death)
  Sender: FDA-Public Use
  Company Number: US-ROCHE-521991

PATIENT
  Age: 59 Year
  Sex: Female
  Weight: 59.9 kg

DRUGS (7)
  1. PEGASYS [Suspect]
     Route: 058
     Dates: start: 20070807, end: 20070831
  2. RIBAVIRIN [Suspect]
     Route: 048
     Dates: start: 20070807, end: 20070831
  3. VICODIN [Concomitant]
     Dates: end: 20070831
  4. TRAZODONE HCL [Concomitant]
     Dates: end: 20070831
  5. METOPROLOL TARTRATE [Concomitant]
     Dates: end: 20070831
  6. LIPITOR [Concomitant]
     Dates: end: 20070831
  7. CELEXA [Concomitant]
     Dates: end: 20070831

REACTIONS (1)
  - MYOCARDIAL INFARCTION [None]
